FAERS Safety Report 6252813-1 (Version None)
Quarter: 2009Q3

REPORT INFORMATION
  Report Type: 
  Country: None (occurrence: None)
  Receive Date: 20090701
  Receipt Date: 20090629
  Transmission Date: 20100115
  Serious: Yes (Hospitalization, Disabling)
  Sender: FDA-Public Use
  Company Number: AU-WYE-G03950009

PATIENT
  Sex: Female

DRUGS (8)
  1. PREMARIN [Suspect]
     Indication: HYPERHIDROSIS
     Route: 048
     Dates: start: 20090601, end: 20090601
  2. PREMARIN [Suspect]
     Indication: HOT FLUSH
     Dosage: ^HALF A 0.625MG TABLET ONCE A DAY^
     Route: 048
     Dates: start: 20090601
  3. PREMARIN [Suspect]
     Indication: MIGRAINE
  4. VITAMIN B COMPLEX CAP [Concomitant]
  5. GLUCOSAMINE [Concomitant]
  6. FISH OIL [Concomitant]
  7. KARVEZIDE [Concomitant]
     Indication: BLOOD PRESSURE
  8. NATRILIX [Concomitant]
     Indication: BLOOD PRESSURE

REACTIONS (7)
  - ARTHRALGIA [None]
  - BREAST SWELLING [None]
  - FALL [None]
  - LOSS OF CONSCIOUSNESS [None]
  - MUSCULOSKELETAL PAIN [None]
  - NIPPLE PAIN [None]
  - SKIN LACERATION [None]
